FAERS Safety Report 17839798 (Version 1)
Quarter: 2020Q2

REPORT INFORMATION
  Report Type: Spontaneous
  Country: US (occurrence: US)
  Receive Date: 20200529
  Receipt Date: 20200529
  Transmission Date: 20200714
  Serious: Yes (Death)
  Sender: FDA-Public Use
  Company Number: None

PATIENT
  Age: 74 Year
  Sex: Male
  Weight: 95 kg

DRUGS (3)
  1. CONVALECENT PLASMA [Concomitant]
     Dates: start: 20200512, end: 20200512
  2. TOCILIZUMAB OR MATCHING PLACEBO [Concomitant]
     Dates: start: 20200515, end: 20200515
  3. REMDESIVIR. [Suspect]
     Active Substance: REMDESIVIR
     Indication: COVID-19
     Route: 042
     Dates: start: 20200513, end: 20200517

REACTIONS (4)
  - Pneumothorax [None]
  - Acute kidney injury [None]
  - Pseudomonal bacteraemia [None]
  - Haemodialysis [None]

NARRATIVE: CASE EVENT DATE: 20200526
